FAERS Safety Report 7542366-X (Version None)
Quarter: 2011Q2

REPORT INFORMATION
  Report Type: 
  Country: None (occurrence: None)
  Receive Date: 20110613
  Receipt Date: 20110610
  Transmission Date: 20111010
  Serious: Yes (Other)
  Sender: FDA-Public Use
  Company Number: US-PFIZER INC-2011127736

PATIENT
  Sex: Female
  Weight: 87.5 kg

DRUGS (7)
  1. CHANTIX [Suspect]
     Indication: SMOKING CESSATION THERAPY
     Dosage: 0.5 MG, DAILY
     Route: 048
     Dates: start: 20110601, end: 20110603
  2. CHANTIX [Suspect]
     Dosage: 0.5 MG, 2X/DAY
     Route: 048
     Dates: start: 20110604, end: 20110601
  3. AZOR [Concomitant]
     Indication: BLOOD PRESSURE ABNORMAL
     Dosage: [AMLODIPINE 10 MG]/[OLMESARTAN MEDOXOMIL 40 MG], DAILY
     Route: 048
  4. PROAIR HFA [Concomitant]
     Indication: DYSPNOEA
     Dosage: 90 UG, 2X/DAY
     Route: 055
  5. CHANTIX [Suspect]
     Dosage: 1.71 MG, 2X/DAY
     Route: 048
     Dates: start: 20110601
  6. OMEPRAZOLE [Concomitant]
     Dosage: 20 MG, DAILY
     Route: 048
  7. ZOLPIDEM TARTRATE [Concomitant]
     Indication: SLEEP DISORDER
     Dosage: 10 UG, DAILY

REACTIONS (3)
  - NAUSEA [None]
  - DIARRHOEA [None]
  - BLOOD PRESSURE INCREASED [None]
